FAERS Safety Report 8556074-X (Version None)
Quarter: 2012Q3

REPORT INFORMATION
  Report Type: 
  Country: None (occurrence: None)
  Receive Date: 20120719
  Receipt Date: 20120709
  Transmission Date: 20120928
  Serious: Yes (Hospitalization, Other)
  Sender: FDA-Public Use
  Company Number: 2012MA008472

PATIENT
  Age: 50 Year
  Sex: Female

DRUGS (2)
  1. LIDOCAINE [Suspect]
     Indication: EYELID DISORDER
     Dosage: 2 PCT, X1
  2. LIDOCAINE [Suspect]
     Indication: WOUND TREATMENT
     Dosage: 2 PCT, X1

REACTIONS (6)
  - SKIN NECROSIS [None]
  - HYPERTROPHIC SCAR [None]
  - INJECTION SITE NECROSIS [None]
  - MADAROSIS [None]
  - EYELID DISORDER [None]
  - INFLAMMATION OF WOUND [None]
